FAERS Safety Report 17075885 (Version 2)
Quarter: 2019Q4

REPORT INFORMATION
  Report Type: Spontaneous
  Country: KW (occurrence: KW)
  Receive Date: 20191126
  Receipt Date: 20191203
  Transmission Date: 20200122
  Serious: Yes (Hospitalization, Other)
  Sender: FDA-Public Use
  Company Number: KW-PFIZER INC-2019505797

PATIENT
  Age: 26 Year
  Sex: Male

DRUGS (10)
  1. DROSTANOLONE PROPIONATE [Suspect]
     Active Substance: DROMOSTANOLONE PROPIONATE
     Dosage: UNK
  2. TRENBOLONE ENANTHATE (TRENBOLONE) [Suspect]
     Active Substance: TRENBOLONE
     Dosage: UNK, DAILY
  3. PREDNISOLONE. [Concomitant]
     Active Substance: PREDNISOLONE
     Indication: ACNE CONGLOBATA
     Dosage: 0.5 MG/KG, 1X/DAY
     Route: 048
  4. PREDNISOLONE. [Concomitant]
     Active Substance: PREDNISOLONE
     Dosage: UNK (GRADUAL REDUCTION OF THE ORAL STEROID)
  5. ISOTRETINOIN. [Concomitant]
     Active Substance: ISOTRETINOIN
     Indication: ACNE CONGLOBATA
     Dosage: 0.1 MG/KG, 1X/DAY
  6. SOMATROPIN. [Suspect]
     Active Substance: SOMATROPIN
     Dosage: 4 IU, 1X/DAY
  7. TESTOSTERONE. [Suspect]
     Active Substance: TESTOSTERONE
     Dosage: 250 MG, 1X/DAY
  8. ISOTRETINOIN. [Concomitant]
     Active Substance: ISOTRETINOIN
     Dosage: 0.5 MG/KG, 1X/DAY
  9. TRENBOLONE [Suspect]
     Active Substance: TRENBOLONE
     Dosage: UNK
  10. NANDROLONE DECANOATE. [Suspect]
     Active Substance: NANDROLONE DECANOATE
     Dosage: UNK, DAILY

REACTIONS (2)
  - Staphylococcal infection [Unknown]
  - Acne fulminans [Recovered/Resolved]
